FAERS Safety Report 10674646 (Version 1)
Quarter: 2014Q4

REPORT INFORMATION
  Report Type: Spontaneous
  Country: US (occurrence: None)
  Receive Date: 20141223
  Receipt Date: 20141223
  Transmission Date: 20150529
  Serious: Yes (Hospitalization)
  Sender: FDA-Public Use
  Company Number: None

PATIENT
  Age: 66 Year
  Sex: Male
  Weight: 59 kg

DRUGS (3)
  1. METHOTREXATE [Suspect]
     Active Substance: METHOTREXATE
     Dosage: HELD 2 DAYS D/T GR 3 HYPOXIA.
     Dates: end: 20141121
  2. NORMAL SALINE [Concomitant]
     Active Substance: SODIUM CHLORIDE
  3. VINCRISTINE SULFATE. [Suspect]
     Active Substance: VINCRISTINE SULFATE
     Dates: end: 20141119

REACTIONS (6)
  - Fluid overload [None]
  - Haemophilus test positive [None]
  - Sputum culture positive [None]
  - Haemoglobin decreased [None]
  - Tachycardia [None]
  - PO2 decreased [None]

NARRATIVE: CASE EVENT DATE: 20141119
